FAERS Safety Report 9425596 (Version 1)
Quarter: 2013Q3

REPORT INFORMATION
  Report Type: Spontaneous
  Country: US (occurrence: US)
  Receive Date: 20130729
  Receipt Date: 20130729
  Transmission Date: 20140515
  Serious: No
  Sender: FDA-Public Use
  Company Number: US-MYLANLABS-2013S1006695

PATIENT
  Age: 44 Year
  Sex: Female
  Weight: 99.79 kg

DRUGS (2)
  1. LEVOTHYROXINE SODIUM TABLETS, USP [Suspect]
     Indication: HYPOTHYROIDISM
     Route: 048
     Dates: end: 201301
  2. CITALOPRAM [Concomitant]
     Indication: ANXIETY

REACTIONS (2)
  - Panic attack [Recovered/Resolved]
  - Blood thyroid stimulating hormone decreased [Recovered/Resolved]
